FAERS Safety Report 7030064-0 (Version None)
Quarter: 2010Q4

REPORT INFORMATION
  Report Type: 
  Country: None (occurrence: None)
  Receive Date: 20101006
  Receipt Date: 20100928
  Transmission Date: 20110411
  Serious: Yes (Hospitalization, Other)
  Sender: FDA-Public Use
  Company Number: DE-JNJFOC-20100800368

PATIENT
  Sex: Female

DRUGS (8)
  1. TAVANIC [Suspect]
     Indication: PSORIASIS
     Route: 048
  2. METFORMIN [Concomitant]
     Route: 065
  3. HERBAL PREPARATION [Concomitant]
     Route: 065
  4. CLOBETASOL PROPIONATE [Concomitant]
     Indication: PSORIASIS
     Route: 065
  5. VERAHEXAL [Concomitant]
  6. TORASEMIDE [Concomitant]
     Route: 065
  7. DICLOFENAC SODIUM [Concomitant]
     Route: 065
  8. SPIRONOLACTONE [Concomitant]
     Route: 065

REACTIONS (3)
  - PERONEAL NERVE PALSY [None]
  - TENDON RUPTURE [None]
  - TENDONITIS [None]
